FAERS Safety Report 6618425-2 (Version None)
Quarter: 2010Q1

REPORT INFORMATION
  Report Type: 
  Country: None (occurrence: None)
  Receive Date: 20100308
  Receipt Date: 20100226
  Transmission Date: 20100710
  Serious: Yes (Hospitalization)
  Sender: FDA-Public Use
  Company Number: B0637920A

PATIENT
  Sex: Female

DRUGS (2)
  1. AUGMENTIN [Suspect]
     Indication: TOOTH ABSCESS
     Dosage: 1G PER DAY
     Route: 048
     Dates: start: 20100222, end: 20100222
  2. UNKNOWN DRUG [Suspect]
     Indication: TOOTH ABSCESS
     Dosage: 100MG PER DAY
     Route: 048
     Dates: start: 20100222, end: 20100222

REACTIONS (1)
  - SKIN REACTION [None]
